FAERS Safety Report 13555829 (Version 2)
Quarter: 2017Q2

REPORT INFORMATION
  Report Type: Spontaneous
  Country: FR (occurrence: FR)
  Receive Date: 20170517
  Receipt Date: 20170522
  Transmission Date: 20170830
  Serious: Yes (Life-Threatening, Hospitalization, Disabling, Other)
  Sender: FDA-Public Use
  Company Number: FR-PFIZER INC-2017213073

PATIENT
  Age: 39 Year
  Sex: Female

DRUGS (3)
  1. IMETH [Suspect]
     Active Substance: METHOTREXATE SODIUM
     Indication: RHEUMATOID ARTHRITIS
     Dosage: 15 MG, WEEKLY
     Route: 048
  2. CORTANCYL [Suspect]
     Active Substance: PREDNISONE
     Indication: RHEUMATOID ARTHRITIS
     Dosage: 10 MG, 1X/DAY
     Route: 048
     Dates: start: 2015
  3. HUMIRA [Suspect]
     Active Substance: ADALIMUMAB
     Indication: RHEUMATOID ARTHRITIS
     Dosage: 40 MG, EVERY TWO WEEKS
     Route: 058
     Dates: start: 201204, end: 201510

REACTIONS (12)
  - Respiratory distress [Unknown]
  - Arthralgia [Unknown]
  - Asthenia [Unknown]
  - Meningitis pneumococcal [Recovered/Resolved with Sequelae]
  - Generalised tonic-clonic seizure [Unknown]
  - Cardiac tamponade [Unknown]
  - Vasculitis cerebral [Unknown]
  - Lupus-like syndrome [Not Recovered/Not Resolved]
  - Dermo-hypodermitis [Recovered/Resolved with Sequelae]
  - Bicytopenia [Unknown]
  - Pyramidal tract syndrome [Unknown]
  - Aphasia [Not Recovered/Not Resolved]

NARRATIVE: CASE EVENT DATE: 2015
